FAERS Safety Report 6127493-6 (Version None)
Quarter: 2009Q1

REPORT INFORMATION
  Report Type: 
  Country: None (occurrence: None)
  Receive Date: 20090323
  Receipt Date: 20090218
  Transmission Date: 20090719
  Serious: No
  Sender: FDA-Public Use
  Company Number: US-BAYER-200913948NA

PATIENT
  Sex: Male

DRUGS (4)
  1. AVELOX [Suspect]
     Indication: SINUS DISORDER
  2. CIPROFLOXACIN HCL [Suspect]
     Indication: SINUS DISORDER
  3. BACTRIM [Concomitant]
  4. MEDROL [Concomitant]

REACTIONS (1)
  - TONGUE ULCERATION [None]
